FAERS Safety Report 4825884-4 (Version None)
Quarter: 2005Q4

REPORT INFORMATION
  Report Type: 
  Country: None (occurrence: None)
  Receive Date: 20051109
  Receipt Date: 20051026
  Transmission Date: 20060501
  Serious: Yes (Other)
  Sender: FDA-Public Use
  Company Number: 2005-10-1591

PATIENT
  Sex: 0

DRUGS (1)
  1. INTRON A [Suspect]

REACTIONS (1)
  - VISUAL FIELD DEFECT [None]
